FAERS Safety Report 5809565-6 (Version None)
Quarter: 2008Q3

REPORT INFORMATION
  Report Type: 
  Country: None (occurrence: None)
  Receive Date: 20080708
  Receipt Date: 20071030
  Transmission Date: 20090109
  Serious: Yes (Hospitalization)
  Sender: FDA-Public Use
  Company Number: M-07-0968

PATIENT
  Age: 69 Year
  Sex: Male

DRUGS (14)
  1. PACERONE [Suspect]
     Indication: ATRIAL FIBRILLATION
     Dosage: 400 MG PO QD
     Route: 048
     Dates: start: 19990801, end: 20031230
  2. PACERONE [Suspect]
     Indication: ATRIAL FIBRILLATION
     Dosage: 200 MG PO QD
     Route: 048
     Dates: start: 19990701, end: 19990801
  3. LOTENSIN [Concomitant]
  4. MEVACOR [Concomitant]
  5. CARDURA [Concomitant]
  6. DIGOXIN [Concomitant]
  7. SYNTHROID [Concomitant]
  8. CLARITIN [Concomitant]
  9. TYLENOL [Concomitant]
  10. ASPIRIN [Concomitant]
  11. MULTI-VITAMIN [Concomitant]
  12. SAW PALMETTO [Concomitant]
  13. GARLIC [Concomitant]
  14. CAYENNE PEPPER [Concomitant]

REACTIONS (6)
  - CHEST PAIN [None]
  - COUGH [None]
  - DYSPNOEA [None]
  - PNEUMONIA [None]
  - PULMONARY TOXICITY [None]
  - VISUAL IMPAIRMENT [None]
